FAERS Safety Report 9486748 (Version 1)
Quarter: 2013Q3

REPORT INFORMATION
  Report Type: Spontaneous
  Country: US (occurrence: US)
  Receive Date: 20130829
  Receipt Date: 20130829
  Transmission Date: 20140515
  Serious: No
  Sender: FDA-Public Use
  Company Number: US-BRISTOL-MYERS SQUIBB COMPANY-19068139

PATIENT
  Age: 65 Year
  Sex: Female
  Weight: 100.68 kg

DRUGS (3)
  1. KOMBIGLYZE XR [Suspect]
     Indication: TYPE 2 DIABETES MELLITUS
     Dosage: 1DF=5MG/1000MG
  2. PLAVIX [Concomitant]
  3. INSULIN [Concomitant]

REACTIONS (2)
  - Constipation [Not Recovered/Not Resolved]
  - Polyp [Unknown]
